FAERS Safety Report 14686930 (Version 2)
Quarter: 2018Q2

REPORT INFORMATION
  Report Type: Spontaneous
  Country: US (occurrence: US)
  Receive Date: 20180327
  Receipt Date: 20180509
  Transmission Date: 20180711
  Serious: Yes (Hospitalization)
  Sender: FDA-Public Use
  Company Number: US-CELGENEUS-USA-20180307353

PATIENT
  Age: 72 Year
  Sex: Male

DRUGS (2)
  1. FT-2102 [Suspect]
     Active Substance: INVESTIGATIONAL PRODUCT
     Indication: ACUTE MYELOID LEUKAEMIA
     Dosage: 150 MILLIGRAM
     Route: 048
     Dates: start: 20180111, end: 201803
  2. VIDAZA [Suspect]
     Active Substance: AZACITIDINE
     Indication: ACUTE MYELOID LEUKAEMIA
     Dosage: 75 MILLIGRAM/SQ. METER
     Route: 065
     Dates: start: 20180111, end: 20180114

REACTIONS (2)
  - Febrile neutropenia [Recovered/Resolved]
  - Acute myeloid leukaemia [Unknown]

NARRATIVE: CASE EVENT DATE: 20180317
